FAERS Safety Report 24609043 (Version 3)
Quarter: 2024Q4

REPORT INFORMATION
  Report Type: Spontaneous
  Country: US (occurrence: US)
  Receive Date: 20241112
  Receipt Date: 20241125
  Transmission Date: 20250114
  Serious: No
  Sender: Haleon PLC
  Company Number: US-HALEON-2208334

PATIENT
  Age: 54 Year
  Sex: Male

DRUGS (1)
  1. ALLI [Suspect]
     Active Substance: ORLISTAT
     Indication: Weight decreased
     Dates: start: 20240926, end: 20241028

REACTIONS (3)
  - Drug ineffective [Unknown]
  - Product complaint [Unknown]
  - Suspected counterfeit product [Unknown]
